FAERS Safety Report 19701301 (Version 3)
Quarter: 2022Q2

REPORT INFORMATION
  Report Type: Spontaneous
  Country: BR (occurrence: BR)
  Receive Date: 20210813
  Receipt Date: 20220628
  Transmission Date: 20220721
  Serious: Yes (Other)
  Sender: FDA-Public Use
  Company Number: BR-GLAXOSMITHKLINE-BR2020AMR258459

PATIENT

DRUGS (5)
  1. NUCALA [Suspect]
     Active Substance: MEPOLIZUMAB
     Indication: Asthma
     Dosage: 100 MG/ML, Z (EACH 28 DAYS)
     Route: 042
     Dates: start: 20201223
  2. MONTELUKAST [Suspect]
     Active Substance: MONTELUKAST SODIUM
     Indication: Product used for unknown indication
     Dosage: UNK
  3. FORMOTEROL [Suspect]
     Active Substance: FORMOTEROL
     Indication: Product used for unknown indication
     Dosage: UNK
  4. BAMIFYLLINE [Suspect]
     Active Substance: BAMIFYLLINE
     Indication: Product used for unknown indication
     Dosage: UNK
  5. TIOTROPIUM [Suspect]
     Active Substance: TIOTROPIUM
     Dosage: UNK

REACTIONS (15)
  - Asthmatic crisis [Unknown]
  - Asthma [Unknown]
  - Injection site erythema [Recovered/Resolved]
  - Injection site haematoma [Recovering/Resolving]
  - Blood pressure increased [Unknown]
  - Anxiety [Recovered/Resolved]
  - Wheezing [Unknown]
  - Dyspnoea [Not Recovered/Not Resolved]
  - Fatigue [Not Recovered/Not Resolved]
  - Headache [Not Recovered/Not Resolved]
  - Malaise [Unknown]
  - Therapy interrupted [Unknown]
  - Mobility decreased [Unknown]
  - Product dose omission issue [Unknown]
  - Inappropriate schedule of product administration [Unknown]

NARRATIVE: CASE EVENT DATE: 20201223
